FAERS Safety Report 5064443-8 (Version None)
Quarter: 2006Q3

REPORT INFORMATION
  Report Type: 
  Country: None (occurrence: None)
  Receive Date: 20060728
  Receipt Date: 20060330
  Transmission Date: 20061208
  Serious: Yes (Hospitalization)
  Sender: FDA-Public Use
  Company Number: US-AMGEN-US174697

PATIENT
  Sex: Male

DRUGS (20)
  1. PROCRIT [Suspect]
     Indication: ANAEMIA
     Route: 058
     Dates: start: 20060101
  2. HYDROXYUREA [Concomitant]
     Dates: end: 20060201
  3. ACTONEL [Concomitant]
     Dates: start: 20060401
  4. DIGOXIN [Concomitant]
  5. LIPITOR [Concomitant]
  6. PROZAC [Concomitant]
  7. LISINOPRIL [Concomitant]
  8. HYDROCHLOROTHIAZIDE [Concomitant]
  9. LASIX [Concomitant]
  10. METFORMIN [Concomitant]
  11. AVANDIA [Concomitant]
  12. AMARYL [Concomitant]
  13. ADVAIR DISKUS 100/50 [Concomitant]
  14. SPIRIVA [Concomitant]
  15. ASPIRIN [Concomitant]
  16. UNSPECIFIED ANTI-INFLAMMATORY AGENT [Concomitant]
  17. VITAMIN E [Concomitant]
  18. VITAMIN D [Concomitant]
  19. MULTIVITAMIN [Concomitant]
  20. IRON [Concomitant]

REACTIONS (13)
  - ANAEMIA [None]
  - BLOOD URINE PRESENT [None]
  - FACE OEDEMA [None]
  - GROIN PAIN [None]
  - HYPOKINESIA [None]
  - INFLAMMATION [None]
  - INSOMNIA [None]
  - LIMB DISCOMFORT [None]
  - LYMPHADENOPATHY [None]
  - MUSCULOSKELETAL PAIN [None]
  - MYALGIA [None]
  - OEDEMA PERIPHERAL [None]
  - OSTEOPOROTIC FRACTURE [None]
